FAERS Safety Report 14840106 (Version 2)
Quarter: 2018Q2

REPORT INFORMATION
  Report Type: Spontaneous
  Country: US (occurrence: US)
  Receive Date: 20180503
  Receipt Date: 20180511
  Transmission Date: 20180711
  Serious: Yes (Hospitalization, Disabling)
  Sender: FDA-Public Use
  Company Number: US-CONCORDIA PHARMACEUTICALS INC.-GSH201805-001455

PATIENT
  Age: 35 Year
  Sex: Female

DRUGS (7)
  1. HYDROXYCHLOROQUINE [Suspect]
     Active Substance: HYDROXYCHLOROQUINE
     Indication: SYSTEMIC LUPUS ERYTHEMATOSUS
     Route: 065
  2. CYCLOPHOSPHAMIDE. [Suspect]
     Active Substance: CYCLOPHOSPHAMIDE
     Indication: LUPUS NEPHRITIS
     Route: 065
  3. HYDROXYCHLOROQUINE [Suspect]
     Active Substance: HYDROXYCHLOROQUINE
     Route: 065
  4. PREDNISONE. [Suspect]
     Active Substance: PREDNISONE
     Indication: SYSTEMIC LUPUS ERYTHEMATOSUS
     Route: 065
  5. PREDNISONE. [Suspect]
     Active Substance: PREDNISONE
     Route: 065
  6. NIFEDIPINE. [Concomitant]
     Active Substance: NIFEDIPINE
  7. LEVOTHYROXINE. [Concomitant]
     Active Substance: LEVOTHYROXINE

REACTIONS (19)
  - Movement disorder [Recovering/Resolving]
  - Pneumonia [Unknown]
  - Encephalopathy [Recovering/Resolving]
  - Cytomegalovirus gastritis [Unknown]
  - Lumbar vertebral fracture [Recovering/Resolving]
  - Hypoaesthesia [Unknown]
  - Sensory disturbance [Unknown]
  - Hypotension [Unknown]
  - Klebsiella infection [Unknown]
  - Muscular weakness [Recovering/Resolving]
  - Enterococcal infection [Unknown]
  - Asthenia [Recovering/Resolving]
  - Walking disability [Recovering/Resolving]
  - Myopathy [Recovering/Resolving]
  - Fatigue [Recovering/Resolving]
  - Paraesthesia [Unknown]
  - Cytomegalovirus colitis [Unknown]
  - Urinary tract infection [Unknown]
  - Streptococcus test positive [Unknown]
